FAERS Safety Report 7624803-5 (Version None)
Quarter: 2011Q3

REPORT INFORMATION
  Report Type: 
  Country: None (occurrence: None)
  Receive Date: 20110720
  Receipt Date: 20110712
  Transmission Date: 20111222
  Serious: Yes (Other)
  Sender: FDA-Public Use
  Company Number: US-PFIZER INC-2011146523

PATIENT
  Sex: Female

DRUGS (5)
  1. FISH OIL [Concomitant]
     Dosage: UNK
     Route: 050
  2. PRISTIQ [Suspect]
     Indication: MAJOR DEPRESSION
     Dosage: 100 MG, 1X/DAY
     Route: 048
     Dates: start: 20100211, end: 20110415
  3. PRENATAL VITAMINS [Concomitant]
     Dosage: UNK
     Route: 050
  4. FOLATE [Concomitant]
     Dosage: 800 MG, UNK
     Route: 050
  5. ZYRTEC [Concomitant]
     Dosage: UNK
     Route: 050

REACTIONS (1)
  - ABORTION SPONTANEOUS [None]
